FAERS Safety Report 8883132 (Version 3)
Quarter: 2021Q1

REPORT INFORMATION
  Report Type: Other
  Country: US (occurrence: US)
  Receive Date: 20121102
  Receipt Date: 20210115
  Transmission Date: 20210420
  Serious: Yes (Hospitalization)
  Sender: FDA-Public Use
  Company Number: US-ROCHE-1074812

PATIENT
  Age: 58 Year
  Sex: Female
  Weight: 88.53 kg

DRUGS (9)
  1. OXYGEN. [Concomitant]
     Active Substance: OXYGEN
     Indication: ASTHMA
     Route: 045
  2. FLONASE [Concomitant]
     Active Substance: FLUTICASONE PROPIONATE
     Indication: ASTHMA
     Route: 048
  3. SINGULAIR [Concomitant]
     Active Substance: MONTELUKAST SODIUM
     Indication: ASTHMA
     Route: 048
  4. XOLAIR [Suspect]
     Active Substance: OMALIZUMAB
     Indication: DYSPNOEA
     Dosage: DATE OF TREATMENT: 21/NOV/2018, 26/OCT/2018, 20/SEP/2018
     Route: 058
  5. DULERA [Concomitant]
     Active Substance: FORMOTEROL FUMARATE DIHYDRATE\MOMETASONE FUROATE
     Indication: ASTHMA
     Route: 055
  6. ALBUTEROL HFA [Concomitant]
     Active Substance: ALBUTEROL SULFATE
     Indication: ASTHMA
     Dosage: DRUG REPORTED AS ALBUTEROL HFA
     Route: 055
  7. ALLEGRA [Concomitant]
     Active Substance: FEXOFENADINE HYDROCHLORIDE
     Indication: ASTHMA
     Route: 048
  8. XOLAIR [Suspect]
     Active Substance: OMALIZUMAB
     Indication: ASTHMA
     Route: 058
     Dates: start: 20120417, end: 20120927
  9. PREDNISONE. [Concomitant]
     Active Substance: PREDNISONE
     Indication: ASTHMA
     Route: 048

REACTIONS (10)
  - Ear infection [Recovered/Resolved]
  - Influenza [Unknown]
  - Anxiety [Unknown]
  - Seasonal allergy [Not Recovered/Not Resolved]
  - Rhinorrhoea [Not Recovered/Not Resolved]
  - Ocular hyperaemia [Not Recovered/Not Resolved]
  - Asthma [Not Recovered/Not Resolved]
  - Vomiting [Recovered/Resolved]
  - Eye pruritus [Not Recovered/Not Resolved]
  - Ear pain [Recovered/Resolved]

NARRATIVE: CASE EVENT DATE: 201205
